FAERS Safety Report 5939222-7 (Version None)
Quarter: 2008Q4

REPORT INFORMATION
  Report Type: 
  Country: None (occurrence: None)
  Receive Date: 20081103
  Receipt Date: 20081022
  Transmission Date: 20090506
  Serious: Yes (Death, Hospitalization, Other)
  Sender: FDA-Public Use
  Company Number: US-PFIZER INC-2008022112

PATIENT
  Sex: Female
  Weight: 53 kg

DRUGS (9)
  1. SUTENT [Suspect]
     Indication: METASTATIC RENAL CELL CARCINOMA
     Route: 048
     Dates: start: 20080104
  2. CELEXA [Suspect]
     Dosage: DAILY DOSE:20MG
  3. EFFEXOR [Suspect]
  4. SYNTHROID [Concomitant]
  5. PREMARIN [Concomitant]
  6. FOSAMAX [Concomitant]
  7. FOLIC ACID [Concomitant]
  8. ALLOPURINOL [Concomitant]
  9. MULTI-VITAMINS [Concomitant]

REACTIONS (14)
  - AMNESIA [None]
  - CONFUSIONAL STATE [None]
  - DIZZINESS [None]
  - DYSGEUSIA [None]
  - GAIT DISTURBANCE [None]
  - HAEMOLYSIS [None]
  - HEADACHE [None]
  - HYPOPHAGIA [None]
  - LETHARGY [None]
  - METABOLIC FUNCTION TEST ABNORMAL [None]
  - ORAL DISCOMFORT [None]
  - ORAL PAIN [None]
  - SEPSIS [None]
  - STOMATITIS [None]
